FAERS Safety Report 6427827-9 (Version None)
Quarter: 2009Q4

REPORT INFORMATION
  Report Type: 
  Country: None (occurrence: None)
  Receive Date: 20091104
  Receipt Date: 20091104
  Transmission Date: 20100525
  Serious: Yes (Hospitalization)
  Sender: FDA-Public Use
  Company Number: None

PATIENT
  Sex: Female
  Weight: 66.2252 kg

DRUGS (13)
  1. OXYCODONE HCL [Suspect]
  2. OMEPRAZOLE [Concomitant]
  3. VYTORIN [Concomitant]
  4. ZIAC [Concomitant]
  5. LEVOTHYROXINE SODIUM [Concomitant]
  6. CARBIDOPA-LEVODOPA [Concomitant]
  7. LYRICA [Concomitant]
  8. PLAVIX [Concomitant]
  9. DICYCLOMINE [Concomitant]
  10. FOLIC ACID [Concomitant]
  11. LOMOTIL [Concomitant]
  12. METHOCARBAMOL [Concomitant]
  13. ASPIRIN [Concomitant]

REACTIONS (5)
  - CHEST PAIN [None]
  - CORONARY ARTERY DISEASE [None]
  - DEVICE OCCLUSION [None]
  - DYSPNOEA [None]
  - HYPERTENSION [None]
